FAERS Safety Report 23472167 (Version 1)
Quarter: 2024Q1

REPORT INFORMATION
  Report Type: Spontaneous
  Country: US (occurrence: None)
  Receive Date: 20240202
  Receipt Date: 20240202
  Transmission Date: 20240409
  Serious: Yes (Disabling)
  Sender: FDA-Public Use
  Company Number: None

PATIENT
  Age: 75 Year
  Sex: Female
  Weight: 65.25 kg

DRUGS (7)
  1. CELECOXIB [Suspect]
     Active Substance: CELECOXIB
     Indication: Arthralgia
     Dosage: 1 CAPSULE DAILY ORAL
     Route: 048
     Dates: start: 20230610, end: 20230712
  2. PREDNISONE [Concomitant]
     Active Substance: PREDNISONE
  3. VITAMIN D [Concomitant]
     Active Substance: VITAMIN D NOS
  4. VITAMIN C [Concomitant]
     Active Substance: ASCORBIC ACID
  5. CALCIUM [Concomitant]
     Active Substance: CALCIUM
  6. D MANNOSE [Concomitant]
  7. Caanberry [Concomitant]

REACTIONS (11)
  - Stiff leg syndrome [None]
  - Peripheral swelling [None]
  - Musculoskeletal stiffness [None]
  - Musculoskeletal stiffness [None]
  - Myalgia [None]
  - Therapy cessation [None]
  - Tendon injury [None]
  - Loss of personal independence in daily activities [None]
  - Polymyalgia rheumatica [None]
  - Arthralgia [None]
  - Autoimmune disorder [None]

NARRATIVE: CASE EVENT DATE: 20230617
